APPROVED DRUG PRODUCT: METOPROLOL TARTRATE
Active Ingredient: METOPROLOL TARTRATE
Strength: 1MG/ML
Dosage Form/Route: INJECTABLE;INJECTION
Application: A091045 | Product #001 | TE Code: AP
Applicant: FRESENIUS KABI USA LLC
Approved: Oct 25, 2010 | RLD: No | RS: No | Type: RX